FAERS Safety Report 14694371 (Version 1)
Quarter: 2018Q1

REPORT INFORMATION
  Report Type: Report from Study
  Country: PT (occurrence: PT)
  Receive Date: 20180329
  Receipt Date: 20180329
  Transmission Date: 20180509
  Serious: Yes (Hospitalization, Other)
  Sender: FDA-Public Use
  Company Number: PT-BRISTOL-MYERS SQUIBB COMPANY-17270778

PATIENT
  Age: 59 Year
  Sex: Male

DRUGS (3)
  1. PACLITAXEL. [Suspect]
     Active Substance: PACLITAXEL
     Indication: NON-SMALL CELL LUNG CANCER
     Dosage: 487.5 UNIT NOS: 27-DEC-2012  531 MG: 07-FEB-2013  480 MG: 11-MAR-2013
     Route: 042
     Dates: start: 20121227, end: 20130311
  2. IPILIMUMAB [Suspect]
     Active Substance: IPILIMUMAB
     Indication: NON-SMALL CELL LUNG CANCER
     Dosage: 140 ML ON 07-FEB-2013 AND ON 11-MAR-2013
     Route: 042
     Dates: start: 20130207, end: 20130311
  3. CARBOPLATIN. [Suspect]
     Active Substance: CARBOPLATIN
     Indication: NON-SMALL CELL LUNG CANCER
     Dosage: 487.5 UNIT NOS: 27-DEC-2012  531 MG: 07-FEB-2013  480 MG: 11-MAR-2013
     Route: 042
     Dates: start: 20121227, end: 20130311

REACTIONS (3)
  - Neutropenia [Recovered/Resolved]
  - Sepsis [Recovered/Resolved]
  - Febrile neutropenia [Recovered/Resolved]

NARRATIVE: CASE EVENT DATE: 20130107
